FAERS Safety Report 14511539 (Version 1)
Quarter: 2018Q1

REPORT INFORMATION
  Report Type: Spontaneous
  Country: US (occurrence: US)
  Receive Date: 20180209
  Receipt Date: 20180209
  Transmission Date: 20180509
  Serious: No
  Sender: FDA-Public Use
  Company Number: US-ENDO PHARMACEUTICALS INC-2017-003559

PATIENT
  Sex: Male
  Weight: 70.3 kg

DRUGS (2)
  1. TESTOSTERONE GEL [Suspect]
     Active Substance: TESTOSTERONE
     Indication: BLOOD TESTOSTERONE DECREASED
     Dosage: UNK UNK, UNKNOWN
     Route: 061
     Dates: start: 2013
  2. TESTOSTERONE GEL [Suspect]
     Active Substance: TESTOSTERONE
     Dosage: 3 PUMPS DAILY
     Route: 061
     Dates: start: 2017

REACTIONS (2)
  - Blood testosterone increased [Not Recovered/Not Resolved]
  - Blood testosterone decreased [Unknown]

NARRATIVE: CASE EVENT DATE: 2016
